FAERS Safety Report 6675298-X (Version None)
Quarter: 2010Q2

REPORT INFORMATION
  Report Type: 
  Country: None (occurrence: None)
  Receive Date: 20100409
  Receipt Date: 20100118
  Transmission Date: 20101027
  Serious: No
  Sender: FDA-Public Use
  Company Number: A0839949A

PATIENT
  Age: 33 Year
  Sex: Female

DRUGS (3)
  1. TYKERB [Suspect]
     Indication: BREAST CANCER
     Dosage: 5TAB PER DAY
     Route: 048
     Dates: start: 20100110
  2. XELODA [Concomitant]
  3. ZOMETA [Concomitant]
     Dates: start: 20100104

REACTIONS (4)
  - ERYTHEMA [None]
  - PRURITUS [None]
  - RASH [None]
  - RASH PUSTULAR [None]
